FAERS Safety Report 8378092-7 (Version None)
Quarter: 2012Q2

REPORT INFORMATION
  Report Type: 
  Country: None (occurrence: None)
  Receive Date: 20120522
  Receipt Date: 20120511
  Transmission Date: 20120825
  Serious: Yes (Death, Hospitalization)
  Sender: FDA-Public Use
  Company Number: PT-BAXTER-2012BAX005289

PATIENT
  Sex: Male

DRUGS (15)
  1. PHYSIONEAL 40 GLUCOSE 1,36% P/V / 13,6 MG/ML [Suspect]
     Route: 033
     Dates: end: 20120511
  2. CINACALCET HYDROCHLORIDE [Concomitant]
     Route: 065
  3. ASPIRIN [Concomitant]
     Route: 048
  4. PANTOC [Concomitant]
     Dosage: 1 TABLET DAILY
     Route: 048
  5. PHYSIONEAL 40 GLUCOSE 3,86% P/V / 38,6 MG/ML [Suspect]
     Route: 033
     Dates: end: 20120511
  6. AMIODARONE HCL [Concomitant]
     Dosage: 1 TABLET DAILY
     Route: 048
  7. CLONIDINE [Concomitant]
     Dosage: 2 TABLETS 3X/DAY
     Route: 048
  8. EXTRANEAL [Suspect]
     Route: 033
     Dates: end: 20120511
  9. PHYSIONEAL 40 GLUCOSE 2,27% P/V / 22,7 MG/ML [Suspect]
     Route: 033
     Dates: end: 20120511
  10. ALFACALCIDOL [Concomitant]
     Route: 065
  11. EPOETIN [Concomitant]
     Route: 058
  12. B COMPLEX                          /00212701/ [Concomitant]
     Route: 065
  13. FOLIC ACID [Concomitant]
     Route: 065
  14. TRENTAL [Concomitant]
     Dosage: 2 TABLETS DAILY
     Route: 048
  15. PERINDOPRIL ERBUMINE [Concomitant]
     Dosage: 1 TABLET DAILY
     Route: 048

REACTIONS (5)
  - CATHETER SITE INFECTION [None]
  - DEATH [None]
  - AMPUTATION STUMP PAIN [None]
  - ABDOMINAL SYMPTOM [None]
  - PERITONITIS BACTERIAL [None]
